FAERS Safety Report 5379958-2 (Version None)
Quarter: 2007Q3

REPORT INFORMATION
  Report Type: 
  Country: None (occurrence: None)
  Receive Date: 20070706
  Receipt Date: 20070702
  Transmission Date: 20080115
  Serious: Yes (Hospitalization, Other)
  Sender: FDA-Public Use
  Company Number: DE-JNJFOC-20070700043

PATIENT
  Age: 61 Year
  Sex: Male

DRUGS (12)
  1. HALDOL [Suspect]
     Route: 048
  2. HALDOL [Suspect]
     Route: 048
  3. HALDOL [Suspect]
     Route: 048
  4. HALDOL [Suspect]
     Indication: DRUG USE FOR UNKNOWN INDICATION
     Route: 048
  5. TAVOR [Concomitant]
     Route: 048
  6. VALPROATE SODIUM [Concomitant]
     Route: 048
  7. VALPROATE SODIUM [Concomitant]
     Route: 048
  8. VALPROATE SODIUM [Concomitant]
     Route: 048
  9. VALPROATE SODIUM [Concomitant]
     Route: 048
  10. VALPROATE SODIUM [Concomitant]
     Route: 048
  11. VALPROATE SODIUM [Concomitant]
     Route: 048
  12. VALPROATE SODIUM [Concomitant]
     Route: 048

REACTIONS (1)
  - DIVERTICULITIS [None]
